FAERS Safety Report 25763742 (Version 1)
Quarter: 2025Q3

REPORT INFORMATION
  Report Type: Spontaneous
  Country: US (occurrence: US)
  Receive Date: 20250905
  Receipt Date: 20250905
  Transmission Date: 20251020
  Serious: No
  Sender: DOMPE FARMACEUTICI
  Company Number: US-FARMAPROD-202411-4073

PATIENT
  Sex: Female

DRUGS (16)
  1. OXERVATE [Suspect]
     Active Substance: CENEGERMIN-BKBJ
     Indication: Neurotrophic keratopathy
     Route: 047
     Dates: start: 20241106
  2. ASPIRIN [Concomitant]
     Active Substance: ASPIRIN
  3. CALCIUM CHLORIDE\MAGNESIUM CHLORIDE [Concomitant]
     Active Substance: CALCIUM CHLORIDE\MAGNESIUM CHLORIDE
  4. PRAVASTATIN SODIUM [Concomitant]
     Active Substance: PRAVASTATIN SODIUM
  5. DOXYCYCLINE HYCLATE [Concomitant]
     Active Substance: DOXYCYCLINE HYCLATE
  6. VENTOLIN  HFA [Concomitant]
  7. ALBUTEROL SULFATE [Concomitant]
     Active Substance: ALBUTEROL SULFATE
  8. MOUNJARO [Concomitant]
     Active Substance: TIRZEPATIDE
  9. LANTUS SOLOSTAR [Concomitant]
     Active Substance: INSULIN GLARGINE
  10. TRELEGY ELLIPTA [Concomitant]
     Active Substance: FLUTICASONE FUROATE\UMECLIDINIUM BROMIDE\VILANTEROL TRIFENATATE
  11. FAMOTIDINE [Concomitant]
     Active Substance: FAMOTIDINE
  12. JARDIANCE [Concomitant]
     Active Substance: EMPAGLIFLOZIN
  13. ALLOPURINOL [Concomitant]
     Active Substance: ALLOPURINOL
  14. SYNTHROID [Concomitant]
     Active Substance: LEVOTHYROXINE SODIUM
  15. TIMOLOL MALEATE [Concomitant]
     Active Substance: TIMOLOL MALEATE
  16. LATANOPROST [Concomitant]
     Active Substance: LATANOPROST

REACTIONS (1)
  - Blood glucose increased [Unknown]
